FAERS Safety Report 5054222-X (Version None)
Quarter: 2006Q3

REPORT INFORMATION
  Report Type: 
  Country: None (occurrence: None)
  Receive Date: 20060713
  Receipt Date: 20060630
  Transmission Date: 20061208
  Serious: Yes (Other)
  Sender: FDA-Public Use
  Company Number: CHPA2006US06414

PATIENT
  Age: 62 Year
  Sex: Female
  Weight: 73 kg

DRUGS (2)
  1. TRANSDERM SCOP [Suspect]
     Indication: MOTION SICKNESS
     Dosage: 1.5 MG, Q72H, TRANSDERMAL
     Route: 062
     Dates: start: 20060624, end: 20060626
  2. SYNTHROID [Concomitant]

REACTIONS (10)
  - DYSGEUSIA [None]
  - EYE PAIN [None]
  - HEADACHE [None]
  - HYPOAESTHESIA [None]
  - INTESTINAL OBSTRUCTION [None]
  - NAUSEA [None]
  - RETCHING [None]
  - TREMOR [None]
  - VISION BLURRED [None]
  - VOMITING [None]
